FAERS Safety Report 10728778 (Version 1)
Quarter: 2015Q1

REPORT INFORMATION
  Report Type: Spontaneous
  Country: US (occurrence: None)
  Receive Date: 20150120
  Receipt Date: 20150120
  Transmission Date: 20150721
  Serious: Yes (Other)
  Sender: FDA-Public Use
  Company Number: None

PATIENT
  Age: 25 Year
  Sex: Female
  Weight: 68.95 kg

DRUGS (1)
  1. VICODIN [Suspect]
     Active Substance: ACETAMINOPHEN\HYDROCODONE BITARTRATE
     Indication: PAIN
     Dosage: 4 TABLETS PER DAY
     Route: 048
     Dates: start: 20141226, end: 20150116

REACTIONS (3)
  - Local swelling [None]
  - Peripheral swelling [None]
  - Rash erythematous [None]

NARRATIVE: CASE EVENT DATE: 20150116
